FAERS Safety Report 6578137-0 (Version None)
Quarter: 2010Q1

REPORT INFORMATION
  Report Type: 
  Country: None (occurrence: None)
  Receive Date: 20100211
  Receipt Date: 20100203
  Transmission Date: 20100710
  Serious: Yes (Other)
  Sender: FDA-Public Use
  Company Number: US-PFIZER INC-2010013230

PATIENT
  Sex: Female
  Weight: 70.295 kg

DRUGS (1)
  1. CHANTIX [Suspect]
     Indication: ASTHMA
     Dosage: 1 MG, 2X/DAY
     Route: 048
     Dates: start: 20100101

REACTIONS (4)
  - ANGER [None]
  - ASTHMA [None]
  - HOMICIDAL IDEATION [None]
  - SUICIDAL IDEATION [None]
